FAERS Safety Report 6549178-4 (Version None)
Quarter: 2010Q1

REPORT INFORMATION
  Report Type: 
  Country: None (occurrence: None)
  Receive Date: 20100125
  Receipt Date: 20100112
  Transmission Date: 20100710
  Serious: Yes (Hospitalization)
  Sender: FDA-Public Use
  Company Number: IT-ELI_LILLY_AND_COMPANY-IT200912002964

PATIENT
  Sex: Female

DRUGS (4)
  1. PLACEBO [Suspect]
     Indication: DEMENTIA ALZHEIMER'S TYPE
     Dosage: MEDIUM/HIGH DOSE, UNK
     Dates: start: 20090915, end: 20091009
  2. OLANZAPINE [Suspect]
     Indication: DEMENTIA ALZHEIMER'S TYPE
     Dosage: 7.5 MG, DAILY (1/D)
     Route: 048
     Dates: start: 20091009
  3. PLANT ALKALOIDS AND OTHER NATURAL PRODUCTS [Concomitant]
  4. HOMEOPATIC PREPARATION [Concomitant]

REACTIONS (1)
  - HYPERPYREXIA [None]
